FAERS Safety Report 23197293 (Version 1)
Quarter: 2023Q4

REPORT INFORMATION
  Report Type: Spontaneous
  Country: BT (occurrence: BT)
  Receive Date: 20231117
  Receipt Date: 20231117
  Transmission Date: 20240110
  Serious: Yes (Other)
  Sender: FDA-Public Use
  Company Number: BT-SUN PHARMACEUTICAL INDUSTRIES LTD-2023RR-418480

PATIENT
  Age: 35 Year
  Sex: Male

DRUGS (4)
  1. CEFTRIAXONE [Suspect]
     Active Substance: CEFTRIAXONE\CEFTRIAXONE SODIUM
     Indication: Rabies
     Dosage: 2 GRAM, BID
     Route: 040
  2. EPINEPHRINE [Suspect]
     Active Substance: EPINEPHRINE
     Indication: Shock
     Dosage: 160 MICROGRAM/MIN
     Route: 040
  3. NOREPINEPHRINE [Suspect]
     Active Substance: NOREPINEPHRINE
     Indication: Shock
     Dosage: 250 MICROGRAM/MIN
     Route: 040
  4. AMPICILLIN [Suspect]
     Active Substance: AMPICILLIN
     Indication: Rabies
     Dosage: 2 GRAM, TID
     Route: 040

REACTIONS (2)
  - Shock [Unknown]
  - Drug ineffective [Unknown]
